FAERS Safety Report 4295424-X (Version None)
Quarter: 2004Q1

REPORT INFORMATION
  Report Type: 
  Country: None (occurrence: None)
  Receive Date: 20040211
  Receipt Date: 20040130
  Transmission Date: 20041129
  Serious: Yes (Hospitalization)
  Sender: FDA-Public Use
  Company Number: HQWYE382121OCT03

PATIENT
  Age: 74 Year
  Sex: Male

DRUGS (9)
  1. EFFEXOR XR [Suspect]
     Indication: DEPRESSION
     Dosage: 75 MG 1X PER 1 DAY ORAL
     Route: 048
     Dates: start: 20030329, end: 20030330
  2. EFEXOR ER (VENLAFAXINE HYDROCHLORIDE, CAPSULES, EXTENDED RELEASE) [Suspect]
     Dosage: 150 MG 1X PER 1 DAY ORAL
     Route: 048
     Dates: start: 20030401, end: 20030402
  3. EFFEXOR XR [Suspect]
     Indication: DEPRESSION
     Dosage: 375 MG 1X PER 1 DAY ORAL
     Route: 048
     Dates: start: 20030403, end: 20040406
  4. EFFEXOR XR [Suspect]
     Dosage: 300 MG 1X PER 1 DAY ORAL
     Route: 048
     Dates: start: 20030407, end: 20030408
  5. PAROXETINE HCL [Suspect]
     Dosage: 20MG 1X PER 1 DAY
     Dates: start: 20030326, end: 20030328
  6. FLUCTINE (FLUCTINE HYDROCHLORIDE,) [Suspect]
     Indication: DEPRESSION
     Dosage: 10 MG 1X PER 1 DAY
     Dates: start: 20030316, end: 20030323
  7. DIPIPERON (PIPAMPERONE) [Concomitant]
  8. ZOLPIDEM TARTRATE [Concomitant]
  9. LORAZEPAM [Concomitant]

REACTIONS (16)
  - AGITATION [None]
  - AMNESIA [None]
  - APATHY [None]
  - CEREBRAL ISCHAEMIA [None]
  - CHILLS [None]
  - CONDITION AGGRAVATED [None]
  - DELIRIUM [None]
  - DISORIENTATION [None]
  - DRUG INTERACTION [None]
  - DRUG LEVEL DECREASED [None]
  - DRUG LEVEL INCREASED [None]
  - DRUG WITHDRAWAL SYNDROME [None]
  - DYSKINESIA [None]
  - INSOMNIA [None]
  - LEUKOENCEPHALOPATHY [None]
  - NERVOUS SYSTEM DISORDER [None]
